FAERS Safety Report 7476248-9 (Version None)
Quarter: 2011Q2

REPORT INFORMATION
  Report Type: 
  Country: None (occurrence: None)
  Receive Date: 20110512
  Receipt Date: 20110224
  Transmission Date: 20111010
  Serious: Yes (Other)
  Sender: FDA-Public Use
  Company Number: PHHY2011CN14927

PATIENT
  Sex: Female
  Weight: 60 kg

DRUGS (2)
  1. MIACALCIN [Suspect]
     Indication: OSTEOPOROSIS
     Dosage: 50 IU, QD
     Route: 030
     Dates: start: 20110101, end: 20110117
  2. CALCIUM [Concomitant]

REACTIONS (3)
  - FLUSHING [None]
  - CHILLS [None]
  - LYMPHADENOPATHY [None]
